FAERS Safety Report 6167260-0 (Version None)
Quarter: 2009Q2

REPORT INFORMATION
  Report Type: 
  Country: None (occurrence: None)
  Receive Date: 20090424
  Receipt Date: 20090413
  Transmission Date: 20091009
  Serious: Yes (Hospitalization, Other)
  Sender: FDA-Public Use
  Company Number: MX-ELI_LILLY_AND_COMPANY-MX200808002707

PATIENT
  Sex: Female
  Weight: 60 kg

DRUGS (4)
  1. HUMALOG MIX 75/25 [Suspect]
     Indication: TYPE 2 DIABETES MELLITUS
     Dosage: 20 IU, OTHER
     Route: 058
     Dates: start: 20080813
  2. HUMALOG MIX 75/25 [Suspect]
     Dosage: 10 IU, OTHER
     Route: 058
     Dates: start: 20080813
  3. HUMALOG MIX 75/25 [Suspect]
     Dosage: UNK, AS NEEDED
     Route: 065
  4. FOLIVITAL [Concomitant]
     Dosage: UNK, UNKNOWN
     Route: 065
     Dates: start: 20070101

REACTIONS (5)
  - ABORTION SPONTANEOUS [None]
  - DRUG EXPOSURE DURING PREGNANCY [None]
  - HAEMORRHAGE [None]
  - INFECTION [None]
  - POST PROCEDURAL COMPLICATION [None]
